FAERS Safety Report 9782553 (Version 2)
Quarter: 2014Q1

REPORT INFORMATION
  Report Type: Report from Study
  Country: US (occurrence: US)
  Receive Date: 20131226
  Receipt Date: 20140108
  Transmission Date: 20141002
  Serious: No
  Sender: FDA-Public Use
  Company Number: PHEH2013US026344

PATIENT
  Sex: Male
  Weight: 133 kg

DRUGS (7)
  1. STALEVO [Suspect]
     Indication: PARKINSON^S DISEASE
     Dosage: 150 MG, QID
     Route: 048
     Dates: start: 20100113, end: 20131219
  2. AMANTADINE HCL [Concomitant]
     Dosage: 1 DF, BID
     Route: 048
  3. AZILECT [Concomitant]
     Indication: PARKINSON^S DISEASE
     Dosage: 1 DF, QD
     Dates: start: 201001
  4. PLAVIX [Concomitant]
     Dosage: 1 DF, QD
  5. LISINOPRIL [Concomitant]
     Dosage: 1 DF, QD
  6. ATENOLOL [Concomitant]
     Dosage: 1 DF, QD
  7. ASPIRIN [Concomitant]
     Dosage: 1 DF, QD

REACTIONS (3)
  - Cardiac disorder [Unknown]
  - Parkinson^s disease [Unknown]
  - Disease progression [Unknown]
